FAERS Safety Report 10590046 (Version 1)
Quarter: 2014Q4

REPORT INFORMATION
  Report Type: Spontaneous
  Country: US (occurrence: None)
  Receive Date: 20141117
  Receipt Date: 20141117
  Transmission Date: 20150529
  Serious: Yes (Other)
  Sender: FDA-Public Use
  Company Number: None

PATIENT
  Age: 51 Year
  Sex: Female
  Weight: 70.31 kg

DRUGS (1)
  1. SIMVASTATIN 20MG MERCK [Suspect]
     Active Substance: SIMVASTATIN
     Indication: BLOOD CHOLESTEROL INCREASED
     Dosage: 1 20MG ONCE DAILY TAKEN BY MOUTH
     Route: 048
     Dates: start: 20120913, end: 20130403

REACTIONS (10)
  - Pain [None]
  - Fatigue [None]
  - Carpal tunnel syndrome [None]
  - Impaired driving ability [None]
  - Trigger finger [None]
  - Vision blurred [None]
  - Plantar fasciitis [None]
  - Pain in extremity [None]
  - Abasia [None]
  - Quality of life decreased [None]

NARRATIVE: CASE EVENT DATE: 20130225
